FAERS Safety Report 8744406 (Version 2)
Quarter: 2013Q1

REPORT INFORMATION
  Report Type: Report from Study
  Country: JP (occurrence: JP)
  Receive Date: 20120825
  Receipt Date: 20130305
  Transmission Date: 20140127
  Serious: Yes (Death)
  Sender: FDA-Public Use
  Company Number: JP-009507513-1208JPN009388

PATIENT
  Sex: Male
  Weight: 65 kg

DRUGS (2)
  1. TEMODAL [Suspect]
     Indication: GLIOBLASTOMA MULTIFORME
     Dosage: 200 MG/M2, QD
     Route: 042
     Dates: start: 20100810, end: 20100814
  2. TEMODAL [Suspect]
     Dosage: 200 MG/M2, QD
     Route: 042
     Dates: start: 20100906, end: 20100910

REACTIONS (1)
  - Death [Fatal]
